FAERS Safety Report 9751994 (Version 1)
Quarter: 2013Q4

REPORT INFORMATION
  Report Type: Spontaneous
  Country: US (occurrence: None)
  Receive Date: 20131212
  Receipt Date: 20131212
  Transmission Date: 20140711
  Serious: Yes (Life-Threatening)
  Sender: FDA-Public Use
  Company Number: None

PATIENT
  Age: 35 Year
  Sex: Female
  Weight: 81.65 kg

DRUGS (13)
  1. THYMOGLOBULIN [Suspect]
     Indication: RENAL TRANSPLANT
     Route: 042
     Dates: start: 20131202, end: 20131202
  2. FENTANYL [Concomitant]
  3. GENTAMICIN [Concomitant]
  4. HEPARIN [Concomitant]
  5. VERAPAMIL [Concomitant]
  6. NITROGLYCERIN [Concomitant]
  7. SODIUM BICARB [Concomitant]
  8. ROCURONIUM [Concomitant]
  9. PROPOFOL [Concomitant]
  10. ZOFRAN [Concomitant]
  11. METHYLPREDNISOLONE [Concomitant]
  12. MIDAZOLAM [Concomitant]
  13. HYDROCHLOROTHIAZIDE [Concomitant]

REACTIONS (2)
  - Pulmonary congestion [None]
  - Respiratory failure [None]
